FAERS Safety Report 18533671 (Version 2)
Quarter: 2020Q4

REPORT INFORMATION
  Report Type: Spontaneous
  Country: RU (occurrence: RU)
  Receive Date: 20201123
  Receipt Date: 20201203
  Transmission Date: 20210114
  Serious: No
  Sender: FDA-Public Use
  Company Number: RU-PFIZER INC-2020454330

PATIENT
  Age: 64 Year
  Sex: Male

DRUGS (8)
  1. KALETRA [Concomitant]
     Active Substance: LOPINAVIR\RITONAVIR
     Indication: COVID-19 TREATMENT
     Dosage: UNK UNK,400/100 2X/DAY
     Dates: start: 20200616, end: 20200629
  2. TOCILIZUMAB. [Concomitant]
     Active Substance: TOCILIZUMAB
     Indication: COVID-19 TREATMENT
     Dosage: 400 MG, 1X/DAY
     Dates: start: 20200615, end: 20200615
  3. AZITHROMYCIN ANHYDROUS. [Concomitant]
     Active Substance: AZITHROMYCIN ANHYDROUS
     Indication: COVID-19 TREATMENT
     Dosage: 500 MG, 1X/DAY
     Dates: start: 20200611, end: 20200615
  4. HYDROXYCHLOROQUINE [Concomitant]
     Active Substance: HYDROXYCHLOROQUINE
     Dosage: 200 MG, 2X/DAY
     Dates: end: 20200617
  5. CORTICOSTEROID NOS [Concomitant]
     Active Substance: CORTICOSTEROID NOS
     Indication: COVID-19 TREATMENT
     Dosage: 8 MG, 1X/DAY
     Dates: start: 20200626, end: 20200628
  6. TOFACITINIB CITRATE [Suspect]
     Active Substance: TOFACITINIB CITRATE
     Indication: COVID-19 TREATMENT
     Dosage: 20 MG, DAILY
     Dates: start: 20200617, end: 20200623
  7. TOCILIZUMAB. [Concomitant]
     Active Substance: TOCILIZUMAB
     Dosage: UNK
     Dates: start: 20200617, end: 20200617
  8. HYDROXYCHLOROQUINE [Concomitant]
     Active Substance: HYDROXYCHLOROQUINE
     Indication: COVID-19 TREATMENT
     Dosage: 400 MG, 2X/DAY
     Dates: start: 20200611

REACTIONS (3)
  - Off label use [Unknown]
  - Product use in unapproved indication [Unknown]
  - Drug effective for unapproved indication [Unknown]
